FAERS Safety Report 25347189 (Version 1)
Quarter: 2025Q2

REPORT INFORMATION
  Report Type: Spontaneous
  Country: IN (occurrence: IN)
  Receive Date: 20250522
  Receipt Date: 20250522
  Transmission Date: 20250716
  Serious: Yes (Hospitalization, Other)
  Sender: LEGACY PHARMACEUTICAL PACKAGING
  Company Number: IN-LEGACY PHARMA INC. SEZC-LGP202505-000153

PATIENT
  Age: 40 Year
  Sex: Male

DRUGS (11)
  1. ATROPINE SULFATE\DIFENOXIN HYDROCHLORIDE [Suspect]
     Active Substance: ATROPINE SULFATE\DIFENOXIN HYDROCHLORIDE
     Indication: Chemical poisoning
     Route: 042
  2. MIDAZOLAM [Concomitant]
     Active Substance: MIDAZOLAM
     Indication: Chemical poisoning
     Route: 042
  3. NOREPINEPHRINE BITARTRATE [Concomitant]
     Active Substance: NOREPINEPHRINE BITARTRATE
     Indication: Chemical poisoning
  4. PRALIDOXIME [Concomitant]
     Active Substance: PRALIDOXIME
     Indication: Chemical poisoning
  5. Cefaperazone/sulbactum [Concomitant]
     Indication: Chemical poisoning
  6. PANTOPRAZOLE SODIUM [Concomitant]
     Active Substance: PANTOPRAZOLE SODIUM
     Indication: Chemical poisoning
     Dosage: 40 MILLIGRAM, DAILY
  7. ONDANSETRON HYDROCHLORIDE [Concomitant]
     Active Substance: ONDANSETRON HYDROCHLORIDE
     Indication: Chemical poisoning
     Route: 042
  8. AMBROXOL [Concomitant]
     Active Substance: AMBROXOL
     Indication: Productive cough
  9. AMBROXOL [Concomitant]
     Active Substance: AMBROXOL
     Indication: Cough
  10. Potklor [Concomitant]
     Indication: Productive cough
     Route: 048
  11. Potklor [Concomitant]
     Indication: Cough

REACTIONS (4)
  - Substance-induced psychotic disorder [Unknown]
  - Irritability [Unknown]
  - Patient uncooperative [Unknown]
  - Product use in unapproved indication [Unknown]
